FAERS Safety Report 8478509-3 (Version None)
Quarter: 2012Q2

REPORT INFORMATION
  Report Type: 
  Country: None (occurrence: None)
  Receive Date: 20120629
  Receipt Date: 20120618
  Transmission Date: 20120825
  Serious: Yes (Other)
  Sender: FDA-Public Use
  Company Number: JP-ELI_LILLY_AND_COMPANY-JP201205006670

PATIENT
  Age: 71 Year
  Sex: Female

DRUGS (2)
  1. ALIMTA [Suspect]
     Indication: NON-SMALL CELL LUNG CANCER
     Dosage: 300 MG/M2, UNK
     Route: 042
     Dates: start: 20101213, end: 20101227
  2. IRESSA [Concomitant]
     Indication: NON-SMALL CELL LUNG CANCER
     Dosage: 250 MG, UNK
     Route: 048
     Dates: start: 20101213, end: 20101227

REACTIONS (1)
  - HEPATIC FUNCTION ABNORMAL [None]
